FAERS Safety Report 7392456-X (Version None)
Quarter: 2011Q2

REPORT INFORMATION
  Report Type: 
  Country: None (occurrence: None)
  Receive Date: 20110404
  Receipt Date: 20110325
  Transmission Date: 20111010
  Serious: Yes (Hospitalization, Other)
  Sender: FDA-Public Use
  Company Number: US-ASTRAZENECA-2009SE20360

PATIENT
  Age: 32 Year
  Sex: Female

DRUGS (3)
  1. NEXIUM [Suspect]
     Route: 048
  2. SEROQUEL [Suspect]
     Route: 048
  3. SEROQUEL [Suspect]
     Route: 048

REACTIONS (6)
  - INTERVERTEBRAL DISC PROTRUSION [None]
  - SURGERY [None]
  - MALAISE [None]
  - BRAIN NEOPLASM [None]
  - DRUG DOSE OMISSION [None]
  - NEOPLASM [None]
